FAERS Safety Report 6711105-4 (Version None)
Quarter: 2010Q2

REPORT INFORMATION
  Report Type: 
  Country: None (occurrence: None)
  Receive Date: 20100505
  Receipt Date: 20090413
  Transmission Date: 20101027
  Serious: No
  Sender: FDA-Public Use
  Company Number: US-KINGPHARMUSA00001-K200900433

PATIENT
  Sex: Female
  Weight: 58.957 kg

DRUGS (8)
  1. AVINZA [Suspect]
     Indication: BACK PAIN
     Dosage: 240 MG, QD
     Route: 048
     Dates: end: 20090201
  2. AVINZA [Suspect]
     Indication: PAIN IN EXTREMITY
     Dosage: 300 MG, QD
     Route: 048
     Dates: start: 20090201
  3. AVINZA [Suspect]
     Indication: NECK PAIN
  4. NEURONTIN [Concomitant]
     Dosage: 300 MG, TID
     Route: 048
  5. CYMBALTA [Concomitant]
     Indication: DEPRESSION
     Dosage: UNK
     Route: 048
     Dates: start: 20080101
  6. CYMBALTA [Concomitant]
     Indication: SLEEP DISORDER
  7. ATIVAN [Concomitant]
     Dosage: UNK, PRN
  8. MORPHINE SULFATE [Concomitant]
     Dosage: 30 MG, QID

REACTIONS (2)
  - DRUG INEFFECTIVE [None]
  - INTENTIONAL DRUG MISUSE [None]
